FAERS Safety Report 21772152 (Version 2)
Quarter: 2023Q1

REPORT INFORMATION
  Report Type: Spontaneous
  Country: US (occurrence: US)
  Receive Date: 20221223
  Receipt Date: 20230328
  Transmission Date: 20230417
  Serious: No
  Sender: FDA-Public Use
  Company Number: US-CTI BIOPHARMA-2022US03119

PATIENT

DRUGS (1)
  1. VONJO [Suspect]
     Active Substance: PACRITINIB
     Indication: Myelofibrosis
     Dosage: 100 MG, BID
     Route: 048

REACTIONS (11)
  - Pain [Unknown]
  - Platelet count increased [Unknown]
  - Infusion [Unknown]
  - White blood cell count decreased [Unknown]
  - Alopecia [Unknown]
  - Contusion [Unknown]
  - Impaired healing [Unknown]
  - Rash [Unknown]
  - Fear [Unknown]
  - Herpes zoster [Unknown]
  - Peripheral swelling [Unknown]
